APPROVED DRUG PRODUCT: RESPORAL
Active Ingredient: DEXBROMPHENIRAMINE MALEATE; PSEUDOEPHEDRINE SULFATE
Strength: 6MG;120MG
Dosage Form/Route: TABLET, EXTENDED RELEASE;ORAL
Application: A089139 | Product #001
Applicant: PIONEER PHARMACEUTICALS INC
Approved: Jun 16, 1988 | RLD: No | RS: No | Type: DISCN